FAERS Safety Report 21943868 (Version 1)
Quarter: 2023Q1

REPORT INFORMATION
  Report Type: Spontaneous
  Country: CA (occurrence: CA)
  Receive Date: 20230202
  Receipt Date: 20230202
  Transmission Date: 20230418
  Serious: Yes (Hospitalization, Other)
  Sender: FDA-Public Use
  Company Number: CA-SA-SAC20230201000678

PATIENT
  Age: 74 Year
  Sex: Male

DRUGS (13)
  1. IRBESARTAN [Suspect]
     Active Substance: IRBESARTAN
     Dosage: UNK
     Route: 048
  2. ACETAMINOPHEN [Concomitant]
     Active Substance: ACETAMINOPHEN
  3. ATORVASTATIN CALCIUM [Concomitant]
     Active Substance: ATORVASTATIN CALCIUM
  4. CELEBREX [Concomitant]
     Active Substance: CELECOXIB
  5. DICLOFENAC [Concomitant]
     Active Substance: DICLOFENAC
  6. ESOMEPRAZOLE MAGNESIUM [Concomitant]
     Active Substance: ESOMEPRAZOLE MAGNESIUM
  7. IBUPROFEN [Concomitant]
     Active Substance: IBUPROFEN
  8. LEFLUNOMIDE [Concomitant]
     Active Substance: LEFLUNOMIDE
  9. PREDNISONE [Concomitant]
     Active Substance: PREDNISONE
  10. RITUXIMAB [Concomitant]
     Active Substance: RITUXIMAB
  11. RIFAMPIN [Concomitant]
     Active Substance: RIFAMPIN
  12. SULFASALAZINE [Concomitant]
     Active Substance: SULFASALAZINE
  13. NAPROXEN [Concomitant]
     Active Substance: NAPROXEN

REACTIONS (6)
  - Lymphoma [Unknown]
  - C-reactive protein increased [Unknown]
  - General physical health deterioration [Unknown]
  - Mycobacterium tuberculosis complex test positive [Unknown]
  - Synovial cyst [Unknown]
  - Drug ineffective [Unknown]
